FAERS Safety Report 5153762-2 (Version None)
Quarter: 2006Q4

REPORT INFORMATION
  Report Type: 
  Country: None (occurrence: None)
  Receive Date: 20061120
  Receipt Date: 20061114
  Transmission Date: 20070319
  Serious: Yes (Hospitalization)
  Sender: FDA-Public Use
  Company Number: FR-SP-2006-03087

PATIENT
  Age: 73 Year
  Sex: Male

DRUGS (1)
  1. BCG  THERAPEUTICS [Suspect]
     Indication: BLADDER CANCER
     Route: 043

REACTIONS (6)
  - ARTHRITIS [None]
  - PITTING OEDEMA [None]
  - POLYARTHRITIS [None]
  - PYREXIA [None]
  - SERONEGATIVE ARTHRITIS [None]
  - SYNOVITIS [None]
